FAERS Safety Report 6422873-3 (Version None)
Quarter: 2009Q4

REPORT INFORMATION
  Report Type: 
  Country: None (occurrence: None)
  Receive Date: 20091102
  Receipt Date: 20091019
  Transmission Date: 20100525
  Serious: Yes (Hospitalization)
  Sender: FDA-Public Use
  Company Number: US-CELGENEUS-163-50794-09040815

PATIENT
  Sex: Male

DRUGS (5)
  1. VIDAZA [Suspect]
     Indication: MYELODYSPLASTIC SYNDROME
     Route: 065
     Dates: start: 20081215, end: 20081219
  2. VIDAZA [Suspect]
     Route: 065
     Dates: start: 20081211, end: 20081212
  3. VIDAZA [Suspect]
     Route: 065
     Dates: start: 20081117, end: 20081120
  4. VIDAZA [Suspect]
     Route: 065
     Dates: start: 20081112, end: 20081114
  5. TRANSFUSION [Concomitant]
     Indication: DRUG USE FOR UNKNOWN INDICATION
     Route: 051

REACTIONS (2)
  - DISEASE PROGRESSION [None]
  - INFECTION [None]
